FAERS Safety Report 24410075 (Version 2)
Quarter: 2024Q4

REPORT INFORMATION
  Report Type: Spontaneous
  Country: US (occurrence: US)
  Receive Date: 20241008
  Receipt Date: 20241118
  Transmission Date: 20250114
  Serious: No
  Sender: CSL BEHRING
  Company Number: US-BEH-2024180989

PATIENT
  Sex: Male

DRUGS (1)
  1. HIZENTRA [Suspect]
     Active Substance: HUMAN IMMUNOGLOBULIN G
     Indication: Congenital hypogammaglobulinaemia
     Dosage: 10 G, QW(STRENGTH: 0.2GM/ML)
     Route: 058
     Dates: start: 202401

REACTIONS (6)
  - Infection [Unknown]
  - Decreased appetite [Unknown]
  - Oliguria [Unknown]
  - Headache [Unknown]
  - Pyrexia [Unknown]
  - Decreased appetite [Unknown]
